FAERS Safety Report 6042541-X (Version None)
Quarter: 2009Q1

REPORT INFORMATION
  Report Type: 
  Country: None (occurrence: None)
  Receive Date: 20090118
  Receipt Date: 20051214
  Transmission Date: 20090719
  Serious: Yes (Hospitalization)
  Sender: FDA-Public Use
  Company Number: US-PFIZER INC-2008160464

PATIENT
  Sex: Male

DRUGS (5)
  1. CELECOXIB [Suspect]
     Dosage: 400 MG, 2X/DAY
     Route: 048
     Dates: start: 20001121, end: 20031124
  2. CELECOXIB [Suspect]
     Dosage: UNK
  3. MULTI-VITAMINS [Concomitant]
  4. TERAZOSIN [Concomitant]
  5. ASPIRIN [Concomitant]

REACTIONS (1)
  - GASTROINTESTINAL HAEMORRHAGE [None]
